FAERS Safety Report 13381352 (Version 1)
Quarter: 2017Q1

REPORT INFORMATION
  Report Type: Spontaneous
  Country: US (occurrence: US)
  Receive Date: 20170328
  Receipt Date: 20170328
  Transmission Date: 20170429
  Serious: No
  Sender: FDA-Public Use
  Company Number: None

PATIENT
  Age: 65 Year
  Sex: Male
  Weight: 56.3 kg

DRUGS (1)
  1. AFINITOR [Suspect]
     Active Substance: EVEROLIMUS
     Indication: GASTROINTESTINAL NEOPLASM
     Dosage: DAILY EVERY 28 DAYS
     Route: 048
     Dates: start: 20161123

REACTIONS (10)
  - Platelet count decreased [None]
  - Epistaxis [None]
  - Cheilitis [None]
  - Weight decreased [None]
  - Haemoglobin decreased [None]
  - Decreased appetite [None]
  - Penile ulceration [None]
  - White blood cell count decreased [None]
  - Abdominal discomfort [None]
  - Stomatitis [None]
